FAERS Safety Report 24288183 (Version 1)
Quarter: 2024Q3

REPORT INFORMATION
  Report Type: Spontaneous
  Country: JP (occurrence: JP)
  Receive Date: 20240905
  Receipt Date: 20240905
  Transmission Date: 20241017
  Serious: Yes (Hospitalization, Other)
  Sender: BRISTOL MYERS SQUIBB
  Company Number: JP-BRISTOL-MYERS SQUIBB COMPANY-2024-047200

PATIENT
  Age: 78 Year
  Sex: Female
  Weight: 51 kg

DRUGS (2)
  1. YERVOY [Suspect]
     Active Substance: IPILIMUMAB
     Indication: Non-small cell lung cancer
     Route: 041
     Dates: start: 20220722, end: 20220802
  2. OPDIVO [Suspect]
     Active Substance: NIVOLUMAB
     Indication: Non-small cell lung cancer
     Route: 041
     Dates: start: 20220722, end: 20220802

REACTIONS (8)
  - Hepatic function abnormal [Recovered/Resolved]
  - Rash [Unknown]
  - Adrenal insufficiency [Recovered/Resolved]
  - Pyrexia [Unknown]
  - Immune-mediated lung disease [Recovered/Resolved]
  - Renal impairment [Recovered/Resolved]
  - Immune-mediated adverse reaction [Unknown]
  - Cytokine release syndrome [Recovered/Resolved]

NARRATIVE: CASE EVENT DATE: 20220730
